FAERS Safety Report 20855424 (Version 1)
Quarter: 2022Q2

REPORT INFORMATION
  Report Type: Spontaneous
  Country: US (occurrence: US)
  Receive Date: 20220520
  Receipt Date: 20220520
  Transmission Date: 20220721
  Serious: No
  Sender: FDA-Public Use
  Company Number: US-ELI_LILLY_AND_COMPANY-US202205008255

PATIENT
  Age: 61 Year
  Sex: Female

DRUGS (3)
  1. OLANZAPINE [Suspect]
     Active Substance: OLANZAPINE
     Indication: Decreased appetite
     Dosage: UNK UNK, UNKNOWN
     Route: 048
     Dates: start: 202204, end: 202204
  2. LENVIMA [Suspect]
     Active Substance: LENVATINIB
     Indication: Endometrial cancer
     Dosage: 8 MG, DAILY
     Route: 048
     Dates: start: 20220430
  3. LENVIMA [Suspect]
     Active Substance: LENVATINIB
     Dosage: 12 MG, DAILY
     Route: 048
     Dates: start: 202203, end: 20220419

REACTIONS (4)
  - Gastritis [Unknown]
  - Vomiting [Recovered/Resolved]
  - Asthenia [Not Recovered/Not Resolved]
  - Off label use [Unknown]

NARRATIVE: CASE EVENT DATE: 20220401
